FAERS Safety Report 7648938-6 (Version None)
Quarter: 2011Q3

REPORT INFORMATION
  Report Type: 
  Country: None (occurrence: None)
  Receive Date: 20110801
  Receipt Date: 20110720
  Transmission Date: 20111222
  Serious: Yes (Hospitalization)
  Sender: FDA-Public Use
  Company Number: JP-B.I. PHARMACEUTICALS,INC./RIDGEFIELD-2011-DE-03743GD

PATIENT
  Age: 74 Year
  Sex: Female
  Weight: 38 kg

DRUGS (3)
  1. LEVODOPA [Suspect]
     Indication: PARKINSON'S DISEASE
     Dosage: 400 MG
     Route: 048
  2. ENTACAPONE [Suspect]
     Indication: PARKINSON'S DISEASE
     Dosage: 400 MG
     Route: 048
     Dates: start: 20080601
  3. PRAMIPEXOLE DIHYDROCHLORIDE [Suspect]
     Indication: PARKINSON'S DISEASE
     Dosage: 2.5 MG
     Route: 048

REACTIONS (4)
  - CHRONIC RESPIRATORY FAILURE [None]
  - DYSKINESIA [None]
  - DRUG EFFECT DECREASED [None]
  - HYPOXIA [None]
